FAERS Safety Report 14186186 (Version 1)
Quarter: 2017Q4

REPORT INFORMATION
  Report Type: Report from Study
  Country: DE (occurrence: DE)
  Receive Date: 20171114
  Receipt Date: 20171114
  Transmission Date: 20180321
  Serious: Yes (Life-Threatening, Hospitalization, Disabling, Other)
  Sender: FDA-Public Use
  Company Number: DE-CELGENEUS-062-50794-11040204

PATIENT
  Age: 64 Year
  Sex: Female
  Weight: 64.4 kg

DRUGS (38)
  1. LEVOTHYROXIN [Concomitant]
     Active Substance: LEVOTHYROXINE
     Indication: PROPHYLAXIS
     Dosage: 50 MILLIGRAM
     Route: 048
     Dates: start: 20110311, end: 20110325
  2. DALTEPARIN [Concomitant]
     Active Substance: DALTEPARIN
     Indication: PROPHYLAXIS
     Dosage: 5000 IU (INTERNATIONAL UNIT)
     Route: 058
     Dates: start: 20110314, end: 20110328
  3. LEVOFLOXACIN. [Concomitant]
     Active Substance: LEVOFLOXACIN
     Indication: PROPHYLAXIS
     Dosage: 500 MILLIGRAM
     Route: 048
     Dates: start: 20110311, end: 20110316
  4. FUROSEMIDE. [Concomitant]
     Active Substance: FUROSEMIDE
     Indication: WEIGHT DECREASED
     Dosage: 1-2
     Route: 041
     Dates: start: 20110311, end: 20110313
  5. FUROSEMIDE. [Concomitant]
     Active Substance: FUROSEMIDE
     Dosage: 40 MILLIGRAM
     Route: 041
     Dates: start: 20110323, end: 20110324
  6. PANTOPRAZOLE [Concomitant]
     Active Substance: PANTOPRAZOLE
     Dosage: 40 MILLIGRAM
     Route: 041
     Dates: start: 20110323, end: 20110328
  7. FUROSEMIDE. [Concomitant]
     Active Substance: FUROSEMIDE
     Dosage: 40 MILLIGRAM
     Route: 041
     Dates: start: 20110310, end: 20110316
  8. INSULIN [Concomitant]
     Active Substance: INSULIN NOS
     Indication: DIABETES MELLITUS
     Route: 058
     Dates: start: 20110316, end: 20110322
  9. PANTOPRAZOLE [Concomitant]
     Active Substance: PANTOPRAZOLE
     Dosage: 40 MILLIGRAM
     Route: 048
     Dates: start: 20110322, end: 20110322
  10. METOPROLOL. [Concomitant]
     Active Substance: METOPROLOL
     Indication: PROPHYLAXIS
     Dosage: 95 MILLIGRAM
     Route: 048
     Dates: start: 20110311, end: 20110328
  11. ALLOPURINOL. [Concomitant]
     Active Substance: ALLOPURINOL
     Indication: PROPHYLAXIS
     Dosage: 150 MILLIGRAM
     Route: 048
     Dates: start: 20110311, end: 20110320
  12. TORASEMIDE [Concomitant]
     Active Substance: TORSEMIDE
     Indication: AORTIC STENOSIS
     Dosage: 5-10
     Route: 048
     Dates: start: 20110311, end: 20110313
  13. FUROSEMIDE. [Concomitant]
     Active Substance: FUROSEMIDE
     Dosage: 80 MILLIGRAM
     Route: 041
     Dates: start: 20110311, end: 20110313
  14. FUROSEMIDE. [Concomitant]
     Active Substance: FUROSEMIDE
     Dosage: 48 MILLILITER
     Route: 041
     Dates: start: 20110325, end: 20110328
  15. HUMAN ALBUMIN [Concomitant]
     Active Substance: ALBUMIN HUMAN
     Dosage: 100 MILLILITER
     Route: 041
     Dates: start: 20110325, end: 20110328
  16. TAZOBAC [Concomitant]
     Active Substance: PIPERACILLIN SODIUM\TAZOBACTAM SODIUM
     Indication: INFECTION
     Dosage: 13.5 GRAM
     Route: 041
     Dates: start: 20110322, end: 20110328
  17. LEVOFLOXACIN. [Concomitant]
     Active Substance: LEVOFLOXACIN
     Dosage: 500 MILLIGRAM
     Route: 048
     Dates: start: 20110317, end: 20110323
  18. POSACONAZOLE [Concomitant]
     Active Substance: POSACONAZOLE
     Indication: ANTIFUNGAL PROPHYLAXIS
     Dosage: 600 MILLIGRAM
     Route: 048
     Dates: start: 20110310, end: 20110321
  19. MORPHINE [Concomitant]
     Active Substance: MORPHINE
     Indication: PAIN
     Dosage: 24 MILLILITER
     Route: 041
     Dates: start: 20110321, end: 20110328
  20. INSULIN [Concomitant]
     Active Substance: INSULIN NOS
     Dosage: 6-15
     Route: 058
     Dates: start: 20110322, end: 20110322
  21. AZACITIDINE. [Suspect]
     Active Substance: AZACITIDINE
     Indication: ACUTE MYELOID LEUKAEMIA
     Dosage: 170 MILLIGRAM
     Route: 041
     Dates: start: 20110314, end: 20110318
  22. ETOPOSIDE. [Suspect]
     Active Substance: ETOPOSIDE
     Indication: ACUTE MYELOID LEUKAEMIA
     Dosage: 170 MILLIGRAM
     Route: 041
     Dates: start: 20110311, end: 20110313
  23. KALIUM [Concomitant]
     Active Substance: POTASSIUM CHLORIDE
     Indication: PROPHYLAXIS
     Dosage: 3-5
     Route: 041
     Dates: start: 20110314, end: 20110328
  24. INSULIN [Concomitant]
     Active Substance: INSULIN NOS
     Route: 041
     Dates: start: 20110323, end: 20110328
  25. MYCAMINE [Concomitant]
     Active Substance: MICAFUNGIN SODIUM
     Indication: NEUTROPENIA
     Dosage: 50 MILLIGRAM
     Route: 041
     Dates: start: 20110322, end: 20110328
  26. HYDROCHLOROTHIAZIDE. [Concomitant]
     Active Substance: HYDROCHLOROTHIAZIDE
     Indication: OEDEMA
     Dosage: 12.5 MILLIGRAM
     Route: 041
     Dates: start: 20110321, end: 20110325
  27. IDARUBICIN [Suspect]
     Active Substance: IDARUBICIN
     Indication: ACUTE MYELOID LEUKAEMIA
     Dosage: 20.4 MILLIGRAM
     Route: 041
     Dates: start: 20110311, end: 20110315
  28. AMLODIPINE [Concomitant]
     Active Substance: AMLODIPINE BESYLATE
     Indication: AORTIC STENOSIS
     Dosage: 10 MILLIGRAM
     Route: 048
     Dates: start: 20110311, end: 20110328
  29. LEVOFLOXACIN. [Concomitant]
     Active Substance: LEVOFLOXACIN
     Dosage: 500 MILLIGRAM
     Route: 041
     Dates: start: 20110323, end: 20110328
  30. FUROSEMIDE. [Concomitant]
     Active Substance: FUROSEMIDE
     Dosage: 160 MILLIGRAM
     Route: 041
     Dates: start: 20110318, end: 20110319
  31. GRANISETRON [Concomitant]
     Active Substance: GRANISETRON
     Indication: PROPHYLAXIS
     Dosage: 1 MILLIGRAM
     Route: 041
     Dates: start: 20110311, end: 20110318
  32. HUMAN ALBUMIN [Concomitant]
     Active Substance: ALBUMIN HUMAN
     Dosage: 100 MILLILITER
     Route: 041
     Dates: start: 20110324, end: 20110324
  33. IBUPROFEN. [Concomitant]
     Active Substance: IBUPROFEN
     Indication: PAIN
     Dosage: 1 GRAM
     Route: 041
     Dates: start: 20110321, end: 20110321
  34. PANTOPRAZOLE [Concomitant]
     Active Substance: PANTOPRAZOLE
     Indication: PROPHYLAXIS
     Dosage: 40 MILLIGRAM
     Route: 048
     Dates: start: 20110311, end: 20110322
  35. FUROSEMIDE. [Concomitant]
     Active Substance: FUROSEMIDE
     Dosage: 40-80
     Route: 041
     Dates: start: 20110311, end: 20110319
  36. SODIUM BICARBONATE. [Concomitant]
     Active Substance: SODIUM BICARBONATE
     Indication: PRODUCT USED FOR UNKNOWN INDICATION
     Dosage: 100 MILLILITER
     Route: 041
     Dates: start: 20110311, end: 20110313
  37. SODIUM BICARBONATE. [Concomitant]
     Active Substance: SODIUM BICARBONATE
     Dosage: 40-80
     Route: 041
     Dates: start: 20110311, end: 20110318
  38. HUMAN ALBUMIN [Concomitant]
     Active Substance: ALBUMIN HUMAN
     Indication: BLOOD ALBUMIN DECREASED
     Dosage: 100 MILLILITER
     Route: 041
     Dates: start: 20110312, end: 20110312

REACTIONS (6)
  - Haemorrhage [Not Recovered/Not Resolved]
  - Pulmonary haemorrhage [Recovered/Resolved]
  - Respiratory failure [Recovered/Resolved]
  - Cytopenia [Recovered/Resolved]
  - Acute kidney injury [Recovered/Resolved with Sequelae]
  - Cardiac failure [Recovered/Resolved]

NARRATIVE: CASE EVENT DATE: 20110328
